FAERS Safety Report 21731428 (Version 4)
Quarter: 2023Q1

REPORT INFORMATION
  Report Type: Spontaneous
  Country: DE (occurrence: DE)
  Receive Date: 20221215
  Receipt Date: 20230217
  Transmission Date: 20230417
  Serious: Yes (Other)
  Sender: FDA-Public Use
  Company Number: DE-TAKEDA-2022TUS058320

PATIENT
  Age: 22 Year
  Sex: Female

DRUGS (5)
  1. AZATHIOPRINE [Suspect]
     Active Substance: AZATHIOPRINE
     Indication: Crohn^s disease
     Dosage: UNK
     Route: 065
  2. PREDNISOLONE [Suspect]
     Active Substance: PREDNISOLONE
     Indication: Crohn^s disease
     Dosage: UNK
     Route: 065
  3. ENTYVIO [Suspect]
     Active Substance: VEDOLIZUMAB
     Indication: Crohn^s disease
     Dosage: UNK
     Route: 065
  4. HUMIRA [Suspect]
     Active Substance: ADALIMUMAB
     Indication: Product used for unknown indication
     Route: 065
  5. BUTYLSCOPOLAMINE BROMIDE [Concomitant]
     Active Substance: BUTYLSCOPOLAMINE BROMIDE
     Indication: Muscle spasms
     Dosage: UNK
     Route: 065

REACTIONS (20)
  - Crohn^s disease [Unknown]
  - Clostridial infection [Recovered/Resolved]
  - Fistula [Unknown]
  - Food intolerance [Unknown]
  - Vomiting [Unknown]
  - Fatigue [Unknown]
  - Quality of life decreased [Unknown]
  - Nausea [Unknown]
  - Dyschezia [Unknown]
  - Diarrhoea [Unknown]
  - Pyrexia [Unknown]
  - Feeling abnormal [Unknown]
  - Weight gain poor [Unknown]
  - Weight decreased [Unknown]
  - Abdominal pain [Unknown]
  - Stenosis [Unknown]
  - Drug ineffective [Unknown]
  - Abdominal distension [Unknown]
  - Frequent bowel movements [Unknown]
  - Illness [Unknown]
